FAERS Safety Report 5011770-6 (Version None)
Quarter: 2006Q2

REPORT INFORMATION
  Report Type: 
  Country: None (occurrence: None)
  Receive Date: 20060526
  Receipt Date: 20060518
  Transmission Date: 20061013
  Serious: Yes (Other)
  Sender: FDA-Public Use
  Company Number: US-JNJFOC-20060504658

PATIENT
  Sex: Female

DRUGS (5)
  1. RISPERDAL [Suspect]
     Route: 048
  2. RISPERDAL [Suspect]
     Indication: AUTISM
     Route: 048
  3. TOPAMAX [Concomitant]
  4. ZYRTEC [Concomitant]
  5. PHENOBARBITAL TAB [Concomitant]

REACTIONS (1)
  - LYMPHOEDEMA [None]
